FAERS Safety Report 9177388 (Version 1)
Quarter: 2013Q1

REPORT INFORMATION
  Report Type: Report from Study
  Country: CA (occurrence: CA)
  Receive Date: 20130321
  Receipt Date: 20130321
  Transmission Date: 20140127
  Serious: Yes (Other)
  Sender: FDA-Public Use
  Company Number: CA-JNJFOC-20130303812

PATIENT
  Sex: Female
  Weight: 50 kg

DRUGS (2)
  1. REMICADE [Suspect]
     Indication: COLITIS ULCERATIVE
     Route: 042
     Dates: start: 20130109
  2. REMICADE [Suspect]
     Indication: COLITIS ULCERATIVE
     Dosage: 20-SEP (UNSPECIFIED YEAR)
     Route: 042

REACTIONS (3)
  - Convulsion [Unknown]
  - Depression [Unknown]
  - Agitation [Unknown]
